FAERS Safety Report 25213312 (Version 1)
Quarter: 2025Q2

REPORT INFORMATION
  Report Type: Spontaneous
  Country: JP (occurrence: JP)
  Receive Date: 20250418
  Receipt Date: 20250418
  Transmission Date: 20250717
  Serious: Yes (Other)
  Sender: PFIZER
  Company Number: JP-PFIZER INC-PV202500035121

PATIENT
  Age: 46 Year
  Sex: Female
  Weight: 50 kg

DRUGS (4)
  1. AZITHROMYCIN DIHYDRATE [Suspect]
     Active Substance: AZITHROMYCIN DIHYDRATE
     Indication: Nasopharyngitis
     Dosage: 2 TABLETS PER DAY
     Route: 048
     Dates: start: 20240924, end: 20240926
  2. DIMEMORFAN PHOSPHATE [Suspect]
     Active Substance: DIMEMORFAN PHOSPHATE
     Indication: Nasopharyngitis
     Dosage: 10 MG, 3X/DAY
     Route: 048
     Dates: start: 20240924, end: 20240930
  3. CARBOCYSTEINE [Suspect]
     Active Substance: CARBOCYSTEINE
     Indication: Nasopharyngitis
     Dosage: 250 MG, 3X/DAY
     Route: 048
     Dates: start: 20240924, end: 20240930
  4. ACETAMINOPHEN [Suspect]
     Active Substance: ACETAMINOPHEN
     Indication: Nasopharyngitis
     Dosage: 1800 MG, DAILY (THREE TIMES A DAY, 300 MG 6 TABLETS)
     Route: 048
     Dates: start: 20240924, end: 20240924

REACTIONS (2)
  - Nausea [Recovered/Resolved]
  - Pallor [Recovered/Resolved]

NARRATIVE: CASE EVENT DATE: 20240924
